FAERS Safety Report 19904396 (Version 2)
Quarter: 2021Q4

REPORT INFORMATION
  Report Type: Spontaneous
  Country: US (occurrence: US)
  Receive Date: 20210930
  Receipt Date: 20211007
  Transmission Date: 20220303
  Serious: No
  Sender: FDA-Public Use
  Company Number: US-ORGANON-O2109USA002260

PATIENT
  Sex: Female

DRUGS (1)
  1. ASMANEX [Suspect]
     Active Substance: MOMETASONE FUROATE
     Indication: Asthma
     Dosage: STRENGTH: 220 MICROGRAM 30 DOSE

REACTIONS (3)
  - Oropharyngeal pain [Not Recovered/Not Resolved]
  - Device malfunction [Unknown]
  - Poor quality device used [Unknown]
